FAERS Safety Report 4787850-7 (Version None)
Quarter: 2005Q3

REPORT INFORMATION
  Report Type: 
  Country: None (occurrence: None)
  Receive Date: 20050926
  Receipt Date: 20050824
  Transmission Date: 20060218
  Serious: Yes (Other)
  Sender: FDA-Public Use
  Company Number: 216147

PATIENT
  Age: 44 Year
  Sex: Female
  Weight: 57.6 kg

DRUGS (4)
  1. AVASTIN [Suspect]
     Indication: COLON CANCER
     Dosage: 285-315 MG, Q2W, INTRAVENOUS
     Route: 042
     Dates: start: 20041201
  2. LEUCOVORIN CALCIUM [Concomitant]
  3. OXALIPLATIN (OXALIPLATIN) [Concomitant]
  4. FLUOROURACIL [Concomitant]

REACTIONS (1)
  - VAGINAL HAEMORRHAGE [None]
